FAERS Safety Report 7794184-5 (Version None)
Quarter: 2011Q4

REPORT INFORMATION
  Report Type: 
  Country: None (occurrence: None)
  Receive Date: 20111004
  Receipt Date: 20110926
  Transmission Date: 20120403
  Serious: Yes (Other)
  Sender: FDA-Public Use
  Company Number: DE-UCBSA-042386

PATIENT
  Sex: Female

DRUGS (2)
  1. KEPPRA [Suspect]
     Indication: EPILEPSY
     Dates: start: 20060206
  2. VALETTE [Concomitant]
     Indication: CONTRACEPTION

REACTIONS (2)
  - PREGNANCY ON CONTRACEPTIVE [None]
  - DIARRHOEA [None]
